FAERS Safety Report 11408633 (Version 1)
Quarter: 2015Q3

REPORT INFORMATION
  Report Type: Spontaneous
  Country: CA (occurrence: CA)
  Receive Date: 20150822
  Receipt Date: 20150822
  Transmission Date: 20151125
  Serious: Yes (Hospitalization, Other)
  Sender: FDA-Public Use
  Company Number: CA-JNJFOC-20150808606

PATIENT

DRUGS (5)
  1. ACETAMINOPHEN. [Suspect]
     Active Substance: ACETAMINOPHEN
     Route: 048
  2. ACETAMINOPHEN. [Suspect]
     Active Substance: ACETAMINOPHEN
     Indication: POSTOPERATIVE ANALGESIA
     Dosage: 10-15MG/KG PER DOSE EVERY HOUR
     Route: 048
  3. IBUPROFEN. [Suspect]
     Active Substance: IBUPROFEN
     Route: 048
  4. IBUPROFEN. [Suspect]
     Active Substance: IBUPROFEN
     Indication: POSTOPERATIVE ANALGESIA
     Dosage: 10 MG/KG PER DOSE EVERY 6 HOURS
     Route: 048
  5. MORPHINE [Suspect]
     Active Substance: MORPHINE
     Indication: POSTOPERATIVE ANALGESIA
     Dosage: 0.2?0.5 MG/KG PER DOSE EVERY 4??HOURS
     Route: 048

REACTIONS (13)
  - Sedation [Unknown]
  - Decreased appetite [Unknown]
  - Constipation [Unknown]
  - Nausea [Unknown]
  - Pyrexia [Unknown]
  - Dizziness [Unknown]
  - Agitation [Unknown]
  - Drug ineffective [Unknown]
  - Sleep terror [Unknown]
  - Diarrhoea [Unknown]
  - Tonsillar haemorrhage [Unknown]
  - Vomiting [Unknown]
  - Confusional state [Unknown]
